FAERS Safety Report 8976342 (Version 1)
Quarter: 2012Q4

REPORT INFORMATION
  Report Type: Report from Study
  Country: CA (occurrence: CA)
  Receive Date: 20121220
  Receipt Date: 20121220
  Transmission Date: 20130627
  Serious: Yes (Other)
  Sender: FDA-Public Use
  Company Number: CA-ROCHE-1166796

PATIENT
  Age: 60 Year
  Sex: Male

DRUGS (3)
  1. OMALIZUMAB [Suspect]
     Indication: PRODUCT USED FOR UNKNOWN INDICATION
     Route: 065
     Dates: start: 20051201
  2. ACCOLATE [Concomitant]
  3. SYMBICORT [Concomitant]

REACTIONS (8)
  - Asthma [Unknown]
  - Anaphylactic shock [Unknown]
  - Hypersensitivity [Unknown]
  - Malaise [Unknown]
  - Food poisoning [Unknown]
  - Wound [Unknown]
  - Fatigue [Unknown]
  - Paraesthesia [Unknown]
